FAERS Safety Report 21471433 (Version 1)
Quarter: 2022Q4

REPORT INFORMATION
  Report Type: Spontaneous
  Country: US (occurrence: None)
  Receive Date: 20221017
  Receipt Date: 20221017
  Transmission Date: 20230113
  Serious: Yes (Life-Threatening, Hospitalization)
  Sender: FDA-Public Use
  Company Number: None

PATIENT
  Age: 44 Year
  Sex: Male
  Weight: 109.8 kg

DRUGS (2)
  1. TRULICITY [Suspect]
     Active Substance: DULAGLUTIDE
     Indication: Type 2 diabetes mellitus
  2. Vitafusion multivites gummies vitamins [Concomitant]

REACTIONS (4)
  - Abdominal pain upper [None]
  - Cholecystectomy [None]
  - Post procedural complication [None]
  - Post procedural bile leak [None]

NARRATIVE: CASE EVENT DATE: 20220223
